FAERS Safety Report 8991894 (Version 1)
Quarter: 2012Q4

REPORT INFORMATION
  Report Type: 
  Country: JP (occurrence: JP)
  Receive Date: 20121231
  Receipt Date: 20121231
  Transmission Date: 20130627
  Serious: Yes (Other)
  Sender: FDA-Public Use
  Company Number: JP-CELGENEUS-087-21880-12102998

PATIENT

DRUGS (2)
  1. REVLIMID [Suspect]
     Indication: MULTIPLE MYELOMA
     Dosage: 5MG-25MG
     Route: 048
  2. DEXAMETHASONE [Suspect]
     Indication: MULTIPLE MYELOMA
     Dosage: 0.5MG -40 MG
     Route: 065

REACTIONS (12)
  - Liver disorder [Unknown]
  - Nephropathy [Unknown]
  - Infection [Unknown]
  - Neutropenia [Unknown]
  - Thrombocytopenia [Unknown]
  - Hypertension [Unknown]
  - Fatigue [Unknown]
  - Condition aggravated [Unknown]
  - Full blood count decreased [Unknown]
  - Malaise [Unknown]
  - Rash [Unknown]
  - Oedema [Unknown]
